FAERS Safety Report 6314544-9 (Version None)
Quarter: 2009Q3

REPORT INFORMATION
  Report Type: 
  Country: None (occurrence: None)
  Receive Date: 20090818
  Receipt Date: 20090818
  Transmission Date: 20100115
  Serious: No
  Sender: FDA-Public Use
  Company Number: None

PATIENT
  Age: 79 Year
  Sex: Male
  Weight: 77.1115 kg

DRUGS (1)
  1. LOVASTATIN [Suspect]
     Dosage: 20 MG DAILY ORAL 500 MG DAILY ORAL
     Route: 048
     Dates: start: 20090501, end: 20090701

REACTIONS (4)
  - FEELING ABNORMAL [None]
  - MALAISE [None]
  - PAIN IN EXTREMITY [None]
  - PERSONALITY CHANGE [None]
